FAERS Safety Report 8472983-4 (Version None)
Quarter: 2012Q2

REPORT INFORMATION
  Report Type: 
  Country: None (occurrence: None)
  Receive Date: 20120627
  Receipt Date: 20120618
  Transmission Date: 20120825
  Serious: No
  Sender: FDA-Public Use
  Company Number: US-B.I. PHARMACEUTICALS,INC./RIDGEFIELD-2012-BP-13966BP

PATIENT
  Sex: Female

DRUGS (14)
  1. TRADJENTA [Suspect]
     Indication: TYPE 2 DIABETES MELLITUS
     Dosage: 5 MG
     Route: 048
     Dates: start: 20120606, end: 20120606
  2. MAGNESIUM OXIDE [Concomitant]
     Indication: MINERAL SUPPLEMENTATION
     Route: 048
  3. RANITIDINE [Concomitant]
     Indication: CROHN'S DISEASE
     Dosage: 300 MG
     Route: 048
  4. RANITIDINE [Concomitant]
     Indication: GASTROOESOPHAGEAL REFLUX DISEASE
  5. DILTIAZEM HYDROCHOLORIDE [Concomitant]
     Indication: HYPERTENSION
     Dosage: 240 MG
     Route: 048
  6. VITAMIN D [Concomitant]
     Indication: SUPPLEMENTATION THERAPY
     Route: 048
  7. CHROMIUM CHLORIDE [Concomitant]
     Dosage: 800 MG
     Route: 048
  8. FUROSEMIDE [Concomitant]
     Indication: DIURETIC THERAPY
     Route: 048
     Dates: start: 20120610
  9. TRADJENTA [Suspect]
     Dosage: 2.5 MG
     Route: 048
     Dates: start: 20120607, end: 20120608
  10. HYDROCODONE BITARTRATE [Concomitant]
     Indication: BACK PAIN
     Route: 048
  11. SODIUM BICARBONATE [Concomitant]
     Indication: CROHN'S DISEASE
     Dosage: 2275 MG
     Route: 048
  12. PREDNISONE TAB [Concomitant]
     Indication: CROHN'S DISEASE
     Route: 048
  13. METOPROLOL TARTRATE [Concomitant]
     Indication: HEART RATE INCREASED
     Route: 048
  14. PRESSURE VISION [Concomitant]
     Indication: INTRAOCULAR PRESSURE TEST ABNORMAL
     Dosage: 400 MG

REACTIONS (8)
  - OEDEMA PERIPHERAL [None]
  - PALPITATIONS [None]
  - RASH [None]
  - GLOSSODYNIA [None]
  - OROPHARYNGEAL PAIN [None]
  - PARAESTHESIA [None]
  - PAIN IN EXTREMITY [None]
  - SWOLLEN TONGUE [None]
